FAERS Safety Report 24718261 (Version 1)
Quarter: 2024Q4

REPORT INFORMATION
  Report Type: Spontaneous
  Country: IN (occurrence: IN)
  Receive Date: 20241210
  Receipt Date: 20241210
  Transmission Date: 20250115
  Serious: Yes (Hospitalization, Other)
  Sender: CIPLA
  Company Number: IN-CIPLA LTD.-2024IN14434

PATIENT

DRUGS (3)
  1. ZIDOVUDINE [Suspect]
     Active Substance: ZIDOVUDINE
     Indication: Retroviral infection
     Dosage: 300 MILLIGRAM, BID
     Route: 065
  2. LAMIVUDINE [Suspect]
     Active Substance: LAMIVUDINE
     Indication: Retroviral infection
     Dosage: 150 MILLIGRAM, BID
     Route: 065
  3. DOLUTEGRAVIR [Suspect]
     Active Substance: DOLUTEGRAVIR
     Indication: Retroviral infection
     Dosage: 50 MILLIGRAM, QD
     Route: 065

REACTIONS (1)
  - Lipohypertrophy [Recovering/Resolving]
